FAERS Safety Report 5931271-8 (Version None)
Quarter: 2008Q4

REPORT INFORMATION
  Report Type: 
  Country: None (occurrence: None)
  Receive Date: 20081027
  Receipt Date: 20081023
  Transmission Date: 20090506
  Serious: Yes (Death, Hospitalization)
  Sender: FDA-Public Use
  Company Number: GB-TEVA-178696ISR

PATIENT
  Age: 76 Year
  Sex: Male

DRUGS (3)
  1. PREDNISOLONE [Suspect]
     Route: 048
     Dates: start: 20080601
  2. DEXAMETHASONE [Suspect]
     Route: 048
     Dates: start: 20080501, end: 20080601
  3. DOCETAXEL [Suspect]
     Indication: PROSTATE CANCER
     Route: 042
     Dates: start: 20080101, end: 20080501

REACTIONS (7)
  - CONSTIPATION [None]
  - FLATULENCE [None]
  - HYPOTENSION [None]
  - ILEUS [None]
  - INTESTINAL PERFORATION [None]
  - NEUTROPENIC SEPSIS [None]
  - RENAL FAILURE ACUTE [None]
